FAERS Safety Report 7727424-9 (Version None)
Quarter: 2011Q3

REPORT INFORMATION
  Report Type: 
  Country: None (occurrence: None)
  Receive Date: 20110902
  Receipt Date: 20110901
  Transmission Date: 20111222
  Serious: Yes (Death)
  Sender: FDA-Public Use
  Company Number: US-PFIZER INC-2011197876

PATIENT
  Sex: Male

DRUGS (3)
  1. NORVASC [Suspect]
  2. PROTONIX [Suspect]
  3. LIPITOR [Suspect]

REACTIONS (1)
  - DEATH [None]
